FAERS Safety Report 4658599-6 (Version None)
Quarter: 2005Q2

REPORT INFORMATION
  Report Type: 
  Country: None (occurrence: None)
  Receive Date: 20050511
  Receipt Date: 20050429
  Transmission Date: 20051028
  Serious: Yes (Hospitalization)
  Sender: FDA-Public Use
  Company Number: ES-BRISTOL-MYERS SQUIBB COMPANY-12956512

PATIENT
  Age: 23 Year
  Sex: Female

DRUGS (3)
  1. HOLOXAN [Suspect]
     Indication: LEUKAEMIA
     Route: 042
     Dates: start: 20040611, end: 20040613
  2. UROMITEXAN [Suspect]
     Indication: LEUKAEMIA
     Route: 042
     Dates: start: 20040611, end: 20040614
  3. VEPESID [Suspect]
     Indication: LEUKAEMIA
     Dosage: CAPS
     Route: 048
     Dates: start: 20040611, end: 20040614

REACTIONS (2)
  - MUSCLE TWITCHING [None]
  - SOMNOLENCE [None]
